FAERS Safety Report 9815319 (Version 2)
Quarter: 2014Q1

REPORT INFORMATION
  Report Type: Spontaneous
  Country: US (occurrence: US)
  Receive Date: 20140114
  Receipt Date: 20140114
  Transmission Date: 20141002
  Serious: Yes (Other)
  Sender: FDA-Public Use
  Company Number: CHPA2014US000523

PATIENT
  Sex: Male

DRUGS (3)
  1. ACETYLSALICYLIC ACID [Suspect]
     Indication: MYOCARDIAL INFARCTION
     Dosage: 81 MG, TWICE A WEEK
     Route: 048
  2. ACETYLSALICYLIC ACID [Suspect]
     Indication: HEADACHE
     Dosage: UNK, QD
  3. TRAMADOL [Concomitant]
     Dosage: 81 MG, UNK

REACTIONS (2)
  - Haemorrhage [Recovered/Resolved]
  - Laceration [Recovered/Resolved]
